FAERS Safety Report 11526082 (Version 1)
Quarter: 2015Q3

REPORT INFORMATION
  Report Type: Spontaneous
  Country: US (occurrence: US)
  Receive Date: 20150918
  Receipt Date: 20150918
  Transmission Date: 20151125
  Serious: Yes (Death, Other)
  Sender: FDA-Public Use
  Company Number: US-TAKEDA-TPA2012A04720

PATIENT

DRUGS (6)
  1. INSULIN [Concomitant]
     Active Substance: INSULIN NOS
     Dates: start: 200903, end: 2011
  2. ACTOS [Suspect]
     Active Substance: PIOGLITAZONE HYDROCHLORIDE
     Indication: TYPE 2 DIABETES MELLITUS
     Dates: start: 2005, end: 201107
  3. LANTUS [Concomitant]
     Active Substance: INSULIN GLARGINE
     Dates: start: 201004, end: 201106
  4. LISPRO [Concomitant]
     Active Substance: INSULIN LISPRO
     Dates: start: 201003, end: 201109
  5. METFORMIN [Concomitant]
     Active Substance: METFORMIN HYDROCHLORIDE
     Dates: start: 201002, end: 201112
  6. LEVEMIR [Concomitant]
     Active Substance: INSULIN DETEMIR
     Dates: start: 20100331

REACTIONS (1)
  - Bladder cancer [Fatal]

NARRATIVE: CASE EVENT DATE: 2009
